FAERS Safety Report 5277183-7 (Version None)
Quarter: 2007Q1

REPORT INFORMATION
  Report Type: 
  Country: None (occurrence: None)
  Receive Date: 20070327
  Receipt Date: 20070319
  Transmission Date: 20070707
  Serious: Yes (Hospitalization)
  Sender: FDA-Public Use
  Company Number: 2007CG00454

PATIENT
  Age: 75 Year
  Sex: Female

DRUGS (6)
  1. OMEPRAZOLE [Suspect]
     Route: 048
  2. TAHOR [Interacting]
     Route: 048
  3. TRAMADOL HCL [Interacting]
     Route: 048
  4. PREVISCAN [Interacting]
     Route: 048
     Dates: end: 20070222
  5. METOPROLOL TARTRATE [Concomitant]
     Route: 048
  6. PRETERAX [Concomitant]
     Route: 048

REACTIONS (4)
  - DRUG INTERACTION [None]
  - INTERNATIONAL NORMALISED RATIO INCREASED [None]
  - MICROCYTIC ANAEMIA [None]
  - OVERDOSE [None]
